FAERS Safety Report 7945264-2 (Version None)
Quarter: 2011Q4

REPORT INFORMATION
  Report Type: 
  Country: None (occurrence: None)
  Receive Date: 20111129
  Receipt Date: 20101013
  Transmission Date: 20120403
  Serious: No
  Sender: FDA-Public Use
  Company Number: US-GLAXOSMITHKLINE-A0886405A

PATIENT
  Age: 45 Year
  Sex: Male

DRUGS (3)
  1. PROZAC [Concomitant]
  2. ALPRAZOLAM [Concomitant]
  3. WELLBUTRIN [Suspect]
     Indication: DEPRESSION
     Dosage: 150MG PER DAY
     Route: 048
     Dates: start: 20101006

REACTIONS (1)
  - ACNE CYSTIC [None]
